FAERS Safety Report 8060432-X (Version None)
Quarter: 2012Q1

REPORT INFORMATION
  Report Type: 
  Country: None (occurrence: None)
  Receive Date: 20120120
  Receipt Date: 20120112
  Transmission Date: 20120608
  Serious: Yes (Life-Threatening, Hospitalization)
  Sender: FDA-Public Use
  Company Number: ZW-VIIV HEALTHCARE LIMITED-B0737472A

PATIENT
  Sex: Female
  Weight: 63.5 kg

DRUGS (8)
  1. NEVIRAPINE [Suspect]
     Indication: HIV INFECTION
     Dosage: 200MG TWICE PER DAY
     Route: 048
     Dates: start: 20090917, end: 20110510
  2. COTRIM [Concomitant]
     Dates: end: 20110628
  3. LEVONORGESTREL [Concomitant]
     Dates: end: 20110420
  4. ALBUTEROL SULFATE AUTOHALER [Concomitant]
  5. TENOFOVIR DISOPROXIL FUMARATE [Suspect]
     Indication: HIV INFECTION
     Dosage: 300MG PER DAY
     Route: 048
     Dates: start: 20110628
  6. LAMIVUDINE (EPIVIR HBV) [Suspect]
     Indication: HIV INFECTION
     Dosage: 300MG PER DAY
     Route: 048
     Dates: start: 20090917, end: 20110510
  7. STAVUDINE [Suspect]
     Indication: HIV INFECTION
     Dosage: 30MG TWICE PER DAY
     Route: 048
     Dates: start: 20090909, end: 20110510
  8. METFORMIN HCL [Suspect]
     Indication: TYPE 2 DIABETES MELLITUS
     Route: 048
     Dates: start: 20110201, end: 20110510

REACTIONS (3)
  - HYPERGLYCAEMIA [None]
  - LACTIC ACIDOSIS [None]
  - DIABETIC KETOACIDOSIS [None]
